FAERS Safety Report 5834744-1 (Version None)
Quarter: 2008Q3

REPORT INFORMATION
  Report Type: 
  Country: None (occurrence: None)
  Receive Date: 20080805
  Receipt Date: 20080728
  Transmission Date: 20090109
  Serious: Yes (Other)
  Sender: FDA-Public Use
  Company Number: US-JNJCH-2008019889

PATIENT
  Age: 48 Year
  Weight: 99.8 kg

DRUGS (1)
  1. ROGAINE [Suspect]
     Indication: ALOPECIA
     Dosage: TEXT:1 ML TWICE DAILY
     Route: 061

REACTIONS (2)
  - CHEST PAIN [None]
  - HEART RATE IRREGULAR [None]
